FAERS Safety Report 18561033 (Version 4)
Quarter: 2020Q4

REPORT INFORMATION
  Report Type: Spontaneous
  Country: AU (occurrence: AU)
  Receive Date: 20201130
  Receipt Date: 20201230
  Transmission Date: 20210114
  Serious: Yes (Hospitalization, Other)
  Sender: FDA-Public Use
  Company Number: AU-MYLANLABS-2020M1070587

PATIENT
  Age: 47 Year
  Sex: Female

DRUGS (1)
  1. CLOZARIL [Suspect]
     Active Substance: CLOZAPINE
     Indication: SCHIZOPHRENIA
     Dosage: 475 MILLIGRAM
     Route: 048
     Dates: start: 20030317, end: 20201117

REACTIONS (6)
  - Pancytopenia [Unknown]
  - White blood cell count decreased [Recovering/Resolving]
  - Colitis [Unknown]
  - Conjunctivitis [Unknown]
  - Neutrophil count decreased [Recovered/Resolved]
  - Gastrointestinal disorder [Unknown]

NARRATIVE: CASE EVENT DATE: 20200805
